FAERS Safety Report 15974507 (Version 4)
Quarter: 2019Q2

REPORT INFORMATION
  Report Type: Report from Study
  Country: US (occurrence: US)
  Receive Date: 20190218
  Receipt Date: 20190628
  Transmission Date: 20190711
  Serious: No
  Sender: FDA-Public Use
  Company Number: PHEH2019US006901

PATIENT
  Age: 38 Year
  Sex: Female

DRUGS (1)
  1. GILENYA [Suspect]
     Active Substance: FINGOLIMOD HYDROCHLORIDE
     Indication: RELAPSING MULTIPLE SCLEROSIS
     Dosage: 0.5 MG, QD
     Route: 048
     Dates: start: 20160526

REACTIONS (5)
  - Stress [Unknown]
  - Memory impairment [Unknown]
  - Incontinence [Unknown]
  - Dyspnoea [Unknown]
  - Bladder disorder [Unknown]

NARRATIVE: CASE EVENT DATE: 20190211
